FAERS Safety Report 15598268 (Version 1)
Quarter: 2018Q4

REPORT INFORMATION
  Report Type: Spontaneous
  Country: US (occurrence: US)
  Receive Date: 20181108
  Receipt Date: 20181108
  Transmission Date: 20190205
  Serious: No
  Sender: FDA-Public Use
  Company Number: None

PATIENT
  Age: 13 Year
  Sex: Female
  Weight: 42.75 kg

DRUGS (1)
  1. METHYLPHENIDATE ER [Suspect]
     Active Substance: METHYLPHENIDATE
     Indication: ATTENTION DEFICIT/HYPERACTIVITY DISORDER
     Route: 048
     Dates: start: 20180201, end: 20180430

REACTIONS (5)
  - Therapeutic response changed [None]
  - Abnormal behaviour [None]
  - Product substitution issue [None]
  - Mood swings [None]
  - Irritability [None]

NARRATIVE: CASE EVENT DATE: 20180301
